FAERS Safety Report 4282646-7 (Version None)
Quarter: 2004Q1

REPORT INFORMATION
  Report Type: 
  Country: None (occurrence: None)
  Receive Date: 20040130
  Receipt Date: 20030115
  Transmission Date: 20041129
  Serious: No
  Sender: FDA-Public Use
  Company Number: US-BRISTOL-MYERS SQUIBB COMPANY-12159208

PATIENT
  Age: 69 Year
  Sex: Female
  Weight: 56 kg

DRUGS (5)
  1. SERZONE [Suspect]
     Indication: DEPRESSION
     Dosage: STARTED AT 200MG DAILY ^A GOOD 5-6 YRS^ AGO.BEGAN TO TAPER DOSE~3 YRS AGO.  NOW AT 87MG DAILY.
     Route: 048
  2. SERZONE [Suspect]
     Indication: ANXIETY
     Dosage: STARTED AT 200MG DAILY ^A GOOD 5-6 YRS^ AGO.BEGAN TO TAPER DOSE~3 YRS AGO.  NOW AT 87MG DAILY.
     Route: 048
  3. ESTRACE [Concomitant]
  4. PROVERA [Concomitant]
  5. MULTI-VITAMIN [Concomitant]

REACTIONS (5)
  - BLOOD PRESSURE FLUCTUATION [None]
  - DRUG INEFFECTIVE [None]
  - DRUG WITHDRAWAL SYNDROME [None]
  - FATIGUE [None]
  - INSOMNIA [None]
